FAERS Safety Report 9288655 (Version 2)
Quarter: 2013Q2

REPORT INFORMATION
  Report Type: Report from Study
  Country: BR (occurrence: BR)
  Receive Date: 20130514
  Receipt Date: 20130611
  Transmission Date: 20140414
  Serious: Yes (Other)
  Sender: FDA-Public Use
  Company Number: PHHY2013BR047672

PATIENT
  Sex: Female
  Weight: 50 kg

DRUGS (4)
  1. ACLASTA [Suspect]
     Indication: OSTEOPOROSIS
     Dosage: 5 MG, ONCE EVERY YEAR
     Route: 042
     Dates: start: 201202
  2. ACLASTA [Suspect]
     Dosage: 5 MG, ONCE EVERY YEAR
     Route: 042
     Dates: start: 201304
  3. CALCIUM D3                         /00944201/ [Concomitant]
     Indication: OSTEOPOROSIS
     Dosage: 1 DF (1 TABLET), DAILY
     Route: 048
     Dates: start: 2010
  4. ZETSIM [Concomitant]
     Indication: BLOOD CHOLESTEROL INCREASED
     Dosage: 1 DF (1 TABLET), DAILY
     Route: 048

REACTIONS (3)
  - Haematuria [Recovering/Resolving]
  - Decreased appetite [Recovering/Resolving]
  - Abdominal pain [Recovering/Resolving]
